FAERS Safety Report 6856081-9 (Version None)
Quarter: 2010Q3

REPORT INFORMATION
  Report Type: 
  Country: None (occurrence: None)
  Receive Date: 20100715
  Receipt Date: 20100715
  Transmission Date: 20110219
  Serious: Yes (Hospitalization)
  Sender: FDA-Public Use
  Company Number: None

PATIENT
  Age: 36 Year
  Sex: Male
  Weight: 97.0698 kg

DRUGS (1)
  1. LUNESTA [Suspect]
     Indication: INSOMNIA
     Dosage: 1 TABLET PER DAY PO
     Route: 048
     Dates: start: 20100218, end: 20100714

REACTIONS (3)
  - EYE DISORDER [None]
  - EYE PAIN [None]
  - PHOTOPHOBIA [None]
